FAERS Safety Report 10557946 (Version 2)
Quarter: 2014Q4

REPORT INFORMATION
  Report Type: Spontaneous
  Country: DE (occurrence: DE)
  Receive Date: 20141031
  Receipt Date: 20141104
  Transmission Date: 20150529
  Serious: Yes (Congenital Anomaly)
  Sender: FDA-Public Use
  Company Number: DE-PFIZER INC-2014294511

PATIENT
  Sex: Female

DRUGS (2)
  1. SERTRALINE HCL [Suspect]
     Active Substance: SERTRALINE HYDROCHLORIDE
     Indication: SCHIZOPHRENIA
     Dosage: 100 MG, 1X/DAY
     Route: 064
     Dates: start: 20080909, end: 20081215
  2. SEROQUEL [Suspect]
     Active Substance: QUETIAPINE FUMARATE
     Indication: SCHIZOPHRENIA
     Dosage: 500 MG TO 600MG, 1X/DAY
     Route: 064
     Dates: start: 20080909, end: 20090121

REACTIONS (4)
  - Maternal exposure during pregnancy [Not Recovered/Not Resolved]
  - Congenital choroid plexus cyst [Not Recovered/Not Resolved]
  - Spina bifida [Not Recovered/Not Resolved]
  - Arnold-Chiari malformation [Not Recovered/Not Resolved]
